FAERS Safety Report 5709141-X (Version None)
Quarter: 2008Q2

REPORT INFORMATION
  Report Type: 
  Country: None (occurrence: None)
  Receive Date: 20080418
  Receipt Date: 20080408
  Transmission Date: 20081010
  Serious: Yes (Hospitalization)
  Sender: FDA-Public Use
  Company Number: FR-WYE-H03553908

PATIENT
  Sex: Female

DRUGS (9)
  1. PANTOPRAZOLE SODIUM [Suspect]
     Indication: COLITIS ISCHAEMIC
     Route: 048
     Dates: start: 20080108, end: 20080114
  2. FLAGYL [Suspect]
     Indication: GASTROINTESTINAL DISORDER
     Dosage: 1.5 G
     Dates: start: 20080107, end: 20080114
  3. ROCEPHIN [Concomitant]
     Indication: GASTROINTESTINAL DISORDER
     Route: 048
     Dates: start: 20080104, end: 20080106
  4. LEXOMIL [Concomitant]
     Dosage: DF
     Route: 048
  5. COTAREG [Concomitant]
     Dosage: DF
     Route: 048
  6. ALLOPURINOL [Concomitant]
     Dosage: DF
     Route: 048
  7. BEFIZAL [Concomitant]
     Dosage: DF
     Route: 048
  8. CIPROFLOXACIN HCL [Suspect]
     Indication: GASTROINTESTINAL DISORDER
     Dosage: 1 G
     Dates: start: 20080107, end: 20080114
  9. KARDEGIC [Concomitant]
     Dosage: UNKNOWN

REACTIONS (2)
  - NEPHROPATHY [None]
  - RENAL FAILURE ACUTE [None]
